FAERS Safety Report 13667064 (Version 1)
Quarter: 2017Q2

REPORT INFORMATION
  Report Type: Spontaneous
  Country: US (occurrence: US)
  Receive Date: 20170619
  Receipt Date: 20170619
  Transmission Date: 20170830
  Serious: No
  Sender: FDA-Public Use
  Company Number: US-ROCHE-1283374

PATIENT
  Sex: Female

DRUGS (13)
  1. VITAMIN B COMPLEX [Concomitant]
     Active Substance: CYANOCOBALAMIN\DEXPANTHENOL\NIACINAMIDE\PYRIDOXINE HYDROCHLORIDE\RIBOFLAVIN 5^-PHOSPHATE SODIUM\THIAMINE HYDROCHLORIDE\VITAMIN B COMPLEX
     Route: 065
  2. XELODA [Suspect]
     Active Substance: CAPECITABINE
     Indication: COLON CANCER
     Dosage: 3 TAB OF THE 500MG BID AND TWO OF THE 150MG BID FOR 14 DAYS EVERY 21 DAYS
     Route: 048
     Dates: start: 20130817
  3. ATENOLOL. [Concomitant]
     Active Substance: ATENOLOL
     Route: 065
  4. HYDROCHLOROTHIAZIDE. [Concomitant]
     Active Substance: HYDROCHLOROTHIAZIDE
     Route: 065
  5. HAWTHORN [Concomitant]
     Active Substance: CRATAEGUS LAEVIGATA FRUIT
     Route: 065
  6. PROZAC [Concomitant]
     Active Substance: FLUOXETINE HYDROCHLORIDE
     Route: 065
  7. VITAMIN C [Concomitant]
     Active Substance: ASCORBIC ACID
     Route: 065
  8. XELODA [Suspect]
     Active Substance: CAPECITABINE
     Dosage: 3 TABS, FOR 14 DAYS ON AND 21 DAYS OFF.
     Route: 048
  9. PERIACTIN [Concomitant]
     Active Substance: CYPROHEPTADINE HYDROCHLORIDE
  10. XELODA [Suspect]
     Active Substance: CAPECITABINE
     Dosage: 14 DAYS ON OUT OF 21 DAYS
     Route: 048
  11. ST. JOHN^S WORT [Concomitant]
     Active Substance: ST. JOHN^S WORT
  12. XELODA [Suspect]
     Active Substance: CAPECITABINE
     Dosage: 3 TABS, FOR 14 DAYS ON AND 21 DAYS OFF.
     Route: 048
     Dates: start: 20130816
  13. MILK THISTLE [Concomitant]
     Active Substance: MILK THISTLE
     Route: 065

REACTIONS (19)
  - Constipation [Unknown]
  - Lacrimation increased [Unknown]
  - Pain [Unknown]
  - Palmar-plantar erythrodysaesthesia syndrome [Unknown]
  - Skin exfoliation [Unknown]
  - Gastrooesophageal reflux disease [Unknown]
  - Alopecia [Unknown]
  - Arthralgia [Unknown]
  - Diarrhoea [Unknown]
  - Pain in extremity [Unknown]
  - Myalgia [Unknown]
  - Skin fissures [Unknown]
  - Fatigue [Unknown]
  - Dry eye [Unknown]
  - Hypertension [Unknown]
  - Eye irritation [Unknown]
  - Eczema weeping [Unknown]
  - Rhinorrhoea [Unknown]
  - Abdominal pain upper [Unknown]
